FAERS Safety Report 11594617 (Version 1)
Quarter: 2015Q4

REPORT INFORMATION
  Report Type: Spontaneous
  Country: US (occurrence: US)
  Receive Date: 20151005
  Receipt Date: 20151005
  Transmission Date: 20160304
  Serious: Yes (Hospitalization, Other)
  Sender: FDA-Public Use
  Company Number: US-BAYER-2015-430304

PATIENT
  Age: 42 Year
  Sex: Female

DRUGS (9)
  1. BETASERON [Suspect]
     Active Substance: INTERFERON BETA-1B
     Indication: MULTIPLE SCLEROSIS
     Dosage: UNK, EVERY 48 HOURS
     Dates: start: 200808
  2. CITALOPRAM [Concomitant]
     Active Substance: CITALOPRAM HYDROBROMIDE
     Dosage: UNK
     Dates: start: 2008
  3. AMPYRA [Suspect]
     Active Substance: DALFAMPRIDINE
     Indication: GAIT DISTURBANCE
     Dosage: 10 MG, BID
     Route: 048
     Dates: start: 20121224
  4. ZYRTEC [Concomitant]
     Active Substance: CETIRIZINE HYDROCHLORIDE
     Dosage: UNK
  5. AMPYRA [Suspect]
     Active Substance: DALFAMPRIDINE
     Indication: COGNITIVE DISORDER
  6. FLEXERIL [Concomitant]
     Active Substance: CYCLOBENZAPRINE HYDROCHLORIDE
     Dosage: UNK
  7. ARICEPT [Concomitant]
     Active Substance: DONEPEZIL HYDROCHLORIDE
     Dosage: UNK
     Dates: start: 20150801
  8. SOLU-MEDROL [Suspect]
     Active Substance: METHYLPREDNISOLONE SODIUM SUCCINATE
     Indication: PRODUCT USED FOR UNKNOWN INDICATION
     Dosage: UNK, 3 DAYS
     Route: 042
  9. NORTRIPTYLINE HCL [Concomitant]
     Active Substance: NORTRIPTYLINE HYDROCHLORIDE
     Dosage: 25 MG, UNK

REACTIONS (33)
  - Multiple sclerosis relapse [Unknown]
  - Gait disturbance [None]
  - Fatigue [Not Recovered/Not Resolved]
  - Asthenia [Unknown]
  - Hepatic enzyme increased [Unknown]
  - Swelling face [Not Recovered/Not Resolved]
  - Gluten sensitivity [None]
  - Vaginal haemorrhage [Unknown]
  - Insomnia [Recovered/Resolved]
  - Urine abnormality [Unknown]
  - Pyrexia [Recovering/Resolving]
  - Abdominal distension [Not Recovered/Not Resolved]
  - Urinary tract infection [Unknown]
  - Fatigue [Unknown]
  - Pelvic pain [Unknown]
  - Burning sensation [Unknown]
  - Weight increased [Unknown]
  - Carpal tunnel syndrome [Unknown]
  - Disorientation [Recovering/Resolving]
  - Abdominal pain [None]
  - Peripheral swelling [Not Recovered/Not Resolved]
  - Vomiting [Recovered/Resolved]
  - Uterine polyp [Unknown]
  - Gait disturbance [Not Recovered/Not Resolved]
  - Drug effect decreased [None]
  - Dizziness [Recovered/Resolved]
  - Gait disturbance [None]
  - Nausea [Recovering/Resolving]
  - Headache [Not Recovered/Not Resolved]
  - Urinary tract infection [Unknown]
  - Influenza like illness [Recovering/Resolving]
  - Nausea [Recovered/Resolved]
  - Urinary tract infection [Unknown]

NARRATIVE: CASE EVENT DATE: 201210
